FAERS Safety Report 8152421-1 (Version None)
Quarter: 2012Q1

REPORT INFORMATION
  Report Type: 
  Country: None (occurrence: None)
  Receive Date: 20120103
  Receipt Date: 20110924
  Transmission Date: 20120608
  Serious: No
  Sender: FDA-Public Use
  Company Number: AE-2011-001791

PATIENT
  Age: 67 Year
  Sex: Male
  Weight: 87.9978 kg

DRUGS (4)
  1. MYLANTA (MYLANTA) [Concomitant]
  2. RIBAVIRIN [Concomitant]
  3. INCIVEK [Suspect]
     Dosage: (3 IN 1 D),ORAL
     Route: 048
     Dates: start: 20110803
  4. PEGINTERFERON (PEGINTERFERON ALFA-2A) [Concomitant]

REACTIONS (3)
  - WEIGHT INCREASED [None]
  - HEADACHE [None]
  - NAUSEA [None]
